FAERS Safety Report 23360555 (Version 1)
Quarter: 2024Q1

REPORT INFORMATION
  Report Type: Spontaneous
  Country: CN (occurrence: CN)
  Receive Date: 20240103
  Receipt Date: 20240103
  Transmission Date: 20240410
  Serious: Yes (Other)
  Sender: FDA-Public Use
  Company Number: CN-SA-SAC20231228000755

PATIENT
  Age: 82 Year
  Sex: Male

DRUGS (2)
  1. LANTUS [Suspect]
     Active Substance: INSULIN GLARGINE
     Indication: Wolfram syndrome
     Dosage: 16 IU, QD
     Route: 058
     Dates: start: 20210917, end: 20231026
  2. ACARBOSE [Concomitant]
     Active Substance: ACARBOSE
     Indication: Wolfram syndrome
     Dosage: 100 MG, TID
     Route: 048
     Dates: start: 20210917, end: 20231226

REACTIONS (3)
  - Subacute myelo-opticoneuropathy [Recovering/Resolving]
  - Peripheral swelling [Recovering/Resolving]
  - Product use in unapproved indication [Unknown]

NARRATIVE: CASE EVENT DATE: 20210917
